FAERS Safety Report 17656123 (Version 1)
Quarter: 2020Q2

REPORT INFORMATION
  Report Type: Spontaneous
  Country: US (occurrence: US)
  Receive Date: 20200409
  Receipt Date: 20200409
  Transmission Date: 20200713
  Serious: No
  Sender: FDA-Public Use
  Company Number: None

PATIENT
  Sex: Female

DRUGS (1)
  1. BENLYSTA [Suspect]
     Active Substance: BELIMUMAB
     Indication: CROHN^S DISEASE
     Route: 058
     Dates: start: 20191101, end: 20200324

REACTIONS (3)
  - Therapy cessation [None]
  - Anxiety [None]
  - Depression [None]
